FAERS Safety Report 19865226 (Version 1)
Quarter: 2021Q3

REPORT INFORMATION
  Report Type: Spontaneous
  Country: US (occurrence: US)
  Receive Date: 20210921
  Receipt Date: 20210921
  Transmission Date: 20211014
  Serious: No
  Sender: FDA-Public Use
  Company Number: None

PATIENT
  Age: 3 Year
  Sex: Female
  Weight: 11.7 kg

DRUGS (3)
  1. MEIJER CHILDREN^S ALLERGY LORATADINE ORAL SOLUTION 5 MG/5 ML ANTIHIST [Suspect]
     Active Substance: LORATADINE
     Indication: COUGH
     Dosage: ?          QUANTITY:5 OUNCE(S);?
     Route: 048
  2. MEIJER CHILDREN^S ALLERGY LORATADINE ORAL SOLUTION 5 MG/5 ML ANTIHIST [Suspect]
     Active Substance: LORATADINE
     Indication: PERIORBITAL SWELLING
     Dosage: ?          QUANTITY:5 OUNCE(S);?
     Route: 048
  3. CHILDRENS ALLERGY MEDICATION [Concomitant]

REACTIONS (2)
  - Product taste abnormal [None]
  - Product substitution issue [None]

NARRATIVE: CASE EVENT DATE: 20210625
